FAERS Safety Report 6554076-6 (Version None)
Quarter: 2010Q1

REPORT INFORMATION
  Report Type: 
  Country: None (occurrence: None)
  Receive Date: 20100125
  Receipt Date: 20100125
  Transmission Date: 20100710
  Serious: Yes (Other)
  Sender: FDA-Public Use
  Company Number: None

PATIENT
  Age: 75 Year
  Sex: Female
  Weight: 59.1 kg

DRUGS (1)
  1. TAZORAC [Suspect]
     Indication: ARTHRITIS
     Dosage: SMALL AMOUNT PRN 060

REACTIONS (1)
  - RASH [None]
